FAERS Safety Report 4297081-5 (Version None)
Quarter: 2004Q1

REPORT INFORMATION
  Report Type: 
  Country: None (occurrence: None)
  Receive Date: 20040213
  Receipt Date: 20040203
  Transmission Date: 20041129
  Serious: Yes (Hospitalization)
  Sender: FDA-Public Use
  Company Number: US-JNJFOC-20040200910

PATIENT
  Age: 69 Year
  Sex: Male

DRUGS (1)
  1. RETEVASE [Suspect]
     Indication: MYOCARDIAL INFARCTION
     Dosage: INJECTION
     Dates: start: 20040129

REACTIONS (1)
  - MYALGIA [None]
